FAERS Safety Report 11727232 (Version 2)
Quarter: 2016Q1

REPORT INFORMATION
  Report Type: Spontaneous
  Country: US (occurrence: US)
  Receive Date: 20151112
  Receipt Date: 20160109
  Transmission Date: 20160525
  Serious: No
  Sender: FDA-Public Use
  Company Number: US-TEVA-607362USA

PATIENT
  Age: 14 Year
  Sex: Male
  Weight: 90.8 kg

DRUGS (1)
  1. PROVIGIL [Suspect]
     Active Substance: MODAFINIL
     Indication: NARCOLEPSY
     Route: 065

REACTIONS (2)
  - Somnolence [Unknown]
  - Insomnia [Unknown]
